FAERS Safety Report 17037996 (Version 1)
Quarter: 2019Q4

REPORT INFORMATION
  Report Type: Report from Study
  Country: RU (occurrence: RU)
  Receive Date: 20191115
  Receipt Date: 20191115
  Transmission Date: 20200122
  Serious: Yes (Other)
  Sender: FDA-Public Use
  Company Number: RU-ASTRAZENECA-2019SF61031

PATIENT
  Age: 77 Year
  Sex: Female
  Weight: 49.5 kg

DRUGS (6)
  1. CORDAFLEX [Concomitant]
     Active Substance: NIFEDIPINE
  2. BRILINTA [Suspect]
     Active Substance: TICAGRELOR
     Indication: STENT PLACEMENT
     Route: 048
     Dates: start: 20190625
  3. ROSUVASTATIN. [Concomitant]
     Active Substance: ROSUVASTATIN
  4. CARDIOMAGNYL [Concomitant]
     Active Substance: ASPIRIN\MAGNESIUM HYDROXIDE
  5. VALSACOR [Concomitant]
     Active Substance: VALSARTAN
  6. LERKAMEN [Concomitant]
     Active Substance: LERCANIDIPINE HYDROCHLORIDE

REACTIONS (3)
  - Blood pressure increased [Unknown]
  - Malaise [Not Recovered/Not Resolved]
  - Chest pain [Not Recovered/Not Resolved]
